FAERS Safety Report 25279049 (Version 1)
Quarter: 2025Q2

REPORT INFORMATION
  Report Type: Spontaneous
  Country: US (occurrence: US)
  Receive Date: 20250507
  Receipt Date: 20250507
  Transmission Date: 20250717
  Serious: Yes (Death, Other)
  Sender: AMGEN
  Company Number: US-AMGEN-USASP2025086085

PATIENT

DRUGS (1)
  1. PREDNISONE [Suspect]
     Active Substance: PREDNISONE
     Indication: Immunosuppression
     Route: 065

REACTIONS (46)
  - Death [Fatal]
  - Haematological infection [Fatal]
  - Corynebacterium bacteraemia [Fatal]
  - Micrococcus infection [Fatal]
  - Bacillus infection [Fatal]
  - Bacteroides infection [Fatal]
  - Sepsis [Unknown]
  - Failure to thrive [Unknown]
  - Candida sepsis [Unknown]
  - Clostridium bacteraemia [Unknown]
  - Peptostreptococcus infection [Unknown]
  - Streptococcal bacteraemia [Unknown]
  - Enterococcal bacteraemia [Unknown]
  - Actinomyces bacteraemia [Unknown]
  - Brevibacterium infection [Unknown]
  - Lactobacillus bacteraemia [Unknown]
  - Achromobacter infection [Unknown]
  - Acinetobacter bacteraemia [Unknown]
  - Burkholderia cepacia complex infection [Unknown]
  - Capnocytophaga infection [Unknown]
  - Escherichia bacteraemia [Unknown]
  - Pseudomonal bacteraemia [Unknown]
  - Shewanella algae bacteraemia [Unknown]
  - Sphingomonas paucimobilis bacteraemia [Unknown]
  - Cholera [Unknown]
  - Pasteurella infection [Unknown]
  - Achromobacter infection [Unknown]
  - Bifidobacterium infection [Unknown]
  - Flavobacterium infection [Unknown]
  - Neisseria infection [Unknown]
  - Mycobacterial infection [Unknown]
  - Fungaemia [Unknown]
  - Rash [Unknown]
  - Laboratory test abnormal [Unknown]
  - Cutibacterium acnes infection [Unknown]
  - Eubacterium infection [Unknown]
  - Staphylococcal infection [Unknown]
  - Eubacterium infection [Unknown]
  - Rhodococcus infection [Unknown]
  - Aeromonas infection [Unknown]
  - Aggregatibacter infection [Unknown]
  - Fusobacterium infection [Unknown]
  - Moraxella infection [Unknown]
  - Veillonella infection [Unknown]
  - Fusarium infection [Unknown]
  - Trichosporon infection [Unknown]
